FAERS Safety Report 19831435 (Version 3)
Quarter: 2021Q4

REPORT INFORMATION
  Report Type: Report from Study
  Country: US (occurrence: US)
  Receive Date: 20210915
  Receipt Date: 20211025
  Transmission Date: 20220303
  Serious: Yes (Other)
  Sender: FDA-Public Use
  Company Number: NVSC2021US208280

PATIENT
  Age: 72 Year
  Sex: Female

DRUGS (1)
  1. ENTRESTO [Suspect]
     Active Substance: SACUBITRIL\VALSARTAN
     Indication: Product used for unknown indication
     Dosage: 1 DF, BID
     Route: 048

REACTIONS (5)
  - Atrioventricular block complete [Recovering/Resolving]
  - Chest pain [Recovering/Resolving]
  - Heart rate irregular [Recovering/Resolving]
  - Onychomadesis [Unknown]
  - Headache [Unknown]

NARRATIVE: CASE EVENT DATE: 20210913
